FAERS Safety Report 7421122-7 (Version None)
Quarter: 2011Q2

REPORT INFORMATION
  Report Type: 
  Country: None (occurrence: None)
  Receive Date: 20110418
  Receipt Date: 20110415
  Transmission Date: 20111010
  Serious: No
  Sender: FDA-Public Use
  Company Number: US-PFIZER INC-2011082646

PATIENT
  Sex: Female
  Weight: 68.027 kg

DRUGS (2)
  1. SOMA [Concomitant]
     Indication: HEADACHE
     Dosage: 350 MG, 2X/DAY
     Route: 048
  2. NICOTROL [Suspect]
     Indication: SMOKING CESSATION THERAPY
     Dosage: 10 MG, 6X/DAY
     Route: 055
     Dates: start: 20110414

REACTIONS (2)
  - DRUG LABEL CONFUSION [None]
  - INCORRECT DOSE ADMINISTERED [None]
